FAERS Safety Report 8877150 (Version 1)
Quarter: 2012Q4

REPORT INFORMATION
  Report Type: Spontaneous
  Country: US (occurrence: None)
  Receive Date: 20121026
  Receipt Date: 20121026
  Transmission Date: 20130627
  Serious: Yes (Hospitalization, Other)
  Sender: FDA-Public Use
  Company Number: ADR-2012-01940

PATIENT
  Sex: Female

DRUGS (6)
  1. BACLOFEN INTRATHECAL (BACLOFEN INJECTION) [Suspect]
  2. BACLOFEN [Concomitant]
  3. GABAPENTIN [Concomitant]
  4. BACTRIM DS [Concomitant]
  5. MOTRIN [Concomitant]
  6. DETROL [Concomitant]

REACTIONS (16)
  - Hepatocellular carcinoma [None]
  - Abdominal pain [None]
  - Muscle spasticity [None]
  - Hydronephrosis [None]
  - Cerebrospinal fluid leakage [None]
  - Wound [None]
  - Back pain [None]
  - Implant site effusion [None]
  - Withdrawal syndrome [None]
  - No therapeutic response [None]
  - Burning sensation [None]
  - Constipation [None]
  - Diarrhoea [None]
  - Arrhythmia [None]
  - Abscess [None]
  - Lethargy [None]
